FAERS Safety Report 4430251-1 (Version None)
Quarter: 2004Q3

REPORT INFORMATION
  Report Type: 
  Country: None (occurrence: None)
  Receive Date: 20040820
  Receipt Date: 20040709
  Transmission Date: 20050211
  Serious: Yes (Death)
  Sender: FDA-Public Use
  Company Number: JP-GLAXOSMITHKLINE-B0338856A

PATIENT
  Age: 36 Year
  Sex: Male
  Weight: 63 kg

DRUGS (14)
  1. MODACIN [Suspect]
     Indication: BACTERIAL INFECTION
     Dosage: 4G PER DAY
     Route: 042
     Dates: start: 20040427, end: 20040428
  2. MEROPEN [Suspect]
     Indication: BACTERIAL INFECTION
     Dosage: 2G PER DAY
     Route: 042
     Dates: start: 20040428, end: 20040506
  3. LASIX [Suspect]
     Dosage: 20MG PER DAY
     Route: 042
     Dates: start: 20040426, end: 20040503
  4. ADONA (AC-17) [Concomitant]
     Dosage: 200MG PER DAY
     Route: 042
     Dates: start: 20040426, end: 20040506
  5. TRANSAMIN [Concomitant]
     Dosage: 500MG PER DAY
     Route: 042
     Dates: start: 20040426, end: 20040506
  6. OMEPRAL [Concomitant]
     Dosage: 20MG PER DAY
     Route: 042
     Dates: start: 20040426, end: 20040516
  7. MORPHINE HYDROCHLORIDE [Concomitant]
     Indication: ANALGESIC EFFECT
     Route: 042
     Dates: start: 20040412, end: 20040516
  8. AMINO ACID INJ [Concomitant]
     Dosage: 600ML PER DAY
     Route: 042
     Dates: start: 20040412, end: 20040516
  9. NEOLAMIN [Concomitant]
     Route: 042
     Dates: start: 20040412, end: 20040516
  10. GLUCOSE [Concomitant]
     Dosage: 700ML PER DAY
     Route: 042
     Dates: start: 20040425, end: 20040516
  11. SOLDEM 3A [Concomitant]
     Dosage: 1000ML PER DAY
     Route: 042
     Dates: start: 20040413, end: 20040507
  12. SODIUM CHLORIDE INJ [Concomitant]
     Dosage: 40ML PER DAY
     Route: 042
     Dates: start: 20040425, end: 20040516
  13. ANTEBATE [Concomitant]
     Indication: RASH
  14. CHLOR-TRIMETON [Concomitant]
     Indication: RASH
     Dosage: 4U PER DAY
     Route: 042
     Dates: start: 20040429, end: 20040506

REACTIONS (13)
  - BLISTER [None]
  - DERMATITIS EXFOLIATIVE [None]
  - DRUG ERUPTION [None]
  - EFFUSION [None]
  - ERYTHEMA [None]
  - EXCORIATION [None]
  - GRAFT VERSUS HOST DISEASE [None]
  - PARAESTHESIA [None]
  - PRURITUS GENERALISED [None]
  - PYREXIA [None]
  - SKIN BLEEDING [None]
  - STAPHYLOCOCCAL INFECTION [None]
  - TOXIC EPIDERMAL NECROLYSIS [None]
